FAERS Safety Report 22725696 (Version 2)
Quarter: 2024Q1

REPORT INFORMATION
  Report Type: Spontaneous
  Country: CA (occurrence: CA)
  Receive Date: 20230719
  Receipt Date: 20240216
  Transmission Date: 20240409
  Serious: Yes (Hospitalization, Other)
  Sender: FDA-Public Use
  Company Number: CA-HLS-202301754

PATIENT
  Age: 55 Year
  Sex: Male

DRUGS (85)
  1. BUSPIRONE [Suspect]
     Active Substance: BUSPIRONE HYDROCHLORIDE
     Indication: Obsessive-compulsive disorder
     Dosage: AMOUNT: 60 MILLIGRAM
     Route: 065
  2. BUSPIRONE [Suspect]
     Active Substance: BUSPIRONE HYDROCHLORIDE
     Indication: Psychotic disorder
     Dosage: AMOUNT: 60 MILLIGRAM
     Route: 065
  3. BUSPIRONE [Suspect]
     Active Substance: BUSPIRONE HYDROCHLORIDE
     Indication: Schizoaffective disorder bipolar type
     Dosage: AMOUNT: 60 MILLIGRAM
     Route: 065
  4. BUSPIRONE [Suspect]
     Active Substance: BUSPIRONE HYDROCHLORIDE
     Indication: Obsessive-compulsive disorder
     Route: 065
  5. BUSPIRONE [Suspect]
     Active Substance: BUSPIRONE HYDROCHLORIDE
     Indication: Psychotic disorder
     Route: 065
  6. BUSPIRONE [Suspect]
     Active Substance: BUSPIRONE HYDROCHLORIDE
     Indication: Schizoaffective disorder bipolar type
     Route: 065
  7. BUSPIRONE [Suspect]
     Active Substance: BUSPIRONE HYDROCHLORIDE
     Indication: Obsessive-compulsive disorder
     Route: 065
  8. BUSPIRONE [Suspect]
     Active Substance: BUSPIRONE HYDROCHLORIDE
     Indication: Psychotic disorder
     Route: 065
  9. BUSPIRONE [Suspect]
     Active Substance: BUSPIRONE HYDROCHLORIDE
     Indication: Schizoaffective disorder bipolar type
     Route: 065
  10. CLOZAPINE [Suspect]
     Active Substance: CLOZAPINE
     Indication: Obsessive-compulsive disorder
     Dosage: 1 EVERY 1 DAYS?AMOUNT: 150 MILLIGRAM
     Route: 065
  11. CLOZAPINE [Suspect]
     Active Substance: CLOZAPINE
     Indication: Psychotic disorder
     Dosage: 1 EVERY 1 DAYS?AMOUNT: 150 MILLIGRAM
     Route: 065
  12. CLOZAPINE [Suspect]
     Active Substance: CLOZAPINE
     Indication: Schizoaffective disorder bipolar type
     Dosage: 1 EVERY 1 DAYS?AMOUNT: 150 MILLIGRAM
     Route: 065
  13. CLOZAPINE [Suspect]
     Active Substance: CLOZAPINE
     Indication: Obsessive-compulsive disorder
     Dosage: 1 EVERY 1 DAYS?AMOUNT: 625 MILLIGRAM?TABLETS DOSAGE FORM
     Route: 065
  14. CLOZAPINE [Suspect]
     Active Substance: CLOZAPINE
     Indication: Psychotic disorder
     Dosage: 1 EVERY 1 DAYS?AMOUNT: 625 MILLIGRAM?TABLETS DOSAGE FORM
     Route: 065
  15. CLOZAPINE [Suspect]
     Active Substance: CLOZAPINE
     Indication: Schizoaffective disorder bipolar type
     Dosage: 1 EVERY 1 DAYS?AMOUNT: 625 MILLIGRAM?TABLETS DOSAGE FORM
     Route: 065
  16. CLOZAPINE [Suspect]
     Active Substance: CLOZAPINE
     Indication: Obsessive-compulsive disorder
     Route: 065
  17. CLOZAPINE [Suspect]
     Active Substance: CLOZAPINE
     Indication: Psychotic disorder
     Route: 065
  18. CLOZAPINE [Suspect]
     Active Substance: CLOZAPINE
     Indication: Schizoaffective disorder bipolar type
     Route: 065
  19. CLOZAPINE [Suspect]
     Active Substance: CLOZAPINE
     Indication: Obsessive-compulsive disorder
     Route: 065
  20. CLOZAPINE [Suspect]
     Active Substance: CLOZAPINE
     Indication: Psychotic disorder
     Route: 065
  21. CLOZAPINE [Suspect]
     Active Substance: CLOZAPINE
     Indication: Schizoaffective disorder bipolar type
     Route: 065
  22. FLUOXETINE HYDROCHLORIDE [Suspect]
     Active Substance: FLUOXETINE HYDROCHLORIDE
     Indication: Obsessive-compulsive disorder
     Dosage: AMOUNT: 60 MILLIGRAM
     Route: 065
  23. FLUOXETINE HYDROCHLORIDE [Suspect]
     Active Substance: FLUOXETINE HYDROCHLORIDE
     Indication: Psychotic disorder
     Dosage: AMOUNT: 60 MILLIGRAM
     Route: 065
  24. FLUOXETINE HYDROCHLORIDE [Suspect]
     Active Substance: FLUOXETINE HYDROCHLORIDE
     Indication: Schizoaffective disorder bipolar type
     Dosage: AMOUNT: 60 MILLIGRAM
     Route: 065
  25. FLUOXETINE HYDROCHLORIDE [Suspect]
     Active Substance: FLUOXETINE HYDROCHLORIDE
     Indication: Obsessive-compulsive disorder
     Route: 065
  26. FLUOXETINE HYDROCHLORIDE [Suspect]
     Active Substance: FLUOXETINE HYDROCHLORIDE
     Indication: Psychotic disorder
     Route: 065
  27. FLUOXETINE HYDROCHLORIDE [Suspect]
     Active Substance: FLUOXETINE HYDROCHLORIDE
     Indication: Schizoaffective disorder bipolar type
     Route: 065
  28. FLUOXETINE HYDROCHLORIDE [Suspect]
     Active Substance: FLUOXETINE HYDROCHLORIDE
     Indication: Obsessive-compulsive disorder
     Route: 065
  29. FLUOXETINE HYDROCHLORIDE [Suspect]
     Active Substance: FLUOXETINE HYDROCHLORIDE
     Indication: Psychotic disorder
     Route: 065
  30. FLUOXETINE HYDROCHLORIDE [Suspect]
     Active Substance: FLUOXETINE HYDROCHLORIDE
     Indication: Schizoaffective disorder bipolar type
     Route: 065
  31. FLUVOXAMINE [Suspect]
     Active Substance: FLUVOXAMINE
     Indication: Obsessive-compulsive disorder
     Dosage: 1 EVERY 1 DAYS?AMOUNT: 200 MILLIGRAM
     Route: 065
  32. FLUVOXAMINE [Suspect]
     Active Substance: FLUVOXAMINE
     Indication: Psychotic disorder
     Dosage: 1 EVERY 1 DAYS?AMOUNT: 200 MILLIGRAM
     Route: 065
  33. FLUVOXAMINE [Suspect]
     Active Substance: FLUVOXAMINE
     Indication: Schizoaffective disorder bipolar type
     Dosage: 1 EVERY 1 DAYS?AMOUNT: 200 MILLIGRAM
     Route: 065
  34. FLUVOXAMINE [Suspect]
     Active Substance: FLUVOXAMINE
     Indication: Obsessive-compulsive disorder
     Route: 065
  35. FLUVOXAMINE [Suspect]
     Active Substance: FLUVOXAMINE
     Indication: Psychotic disorder
     Route: 065
  36. FLUVOXAMINE [Suspect]
     Active Substance: FLUVOXAMINE
     Indication: Schizoaffective disorder bipolar type
     Route: 065
  37. FLUVOXAMINE [Suspect]
     Active Substance: FLUVOXAMINE
     Indication: Obsessive-compulsive disorder
     Route: 065
  38. FLUVOXAMINE [Suspect]
     Active Substance: FLUVOXAMINE
     Indication: Psychotic disorder
     Route: 065
  39. FLUVOXAMINE [Suspect]
     Active Substance: FLUVOXAMINE
     Indication: Schizoaffective disorder bipolar type
     Route: 065
  40. OXAZEPAM [Suspect]
     Active Substance: OXAZEPAM
     Indication: Psychotic disorder
     Dosage: AMOUNT: 20 MILLIGRAM?TABLETS DOSAGE FORM
     Route: 065
  41. OXAZEPAM [Suspect]
     Active Substance: OXAZEPAM
     Indication: Schizoaffective disorder bipolar type
     Dosage: AMOUNT: 20 MILLIGRAM?TABLETS DOSAGE FORM
     Route: 065
  42. OXAZEPAM [Suspect]
     Active Substance: OXAZEPAM
     Indication: Psychotic disorder
     Route: 065
  43. OXAZEPAM [Suspect]
     Active Substance: OXAZEPAM
     Indication: Schizoaffective disorder bipolar type
     Route: 065
  44. OXAZEPAM [Suspect]
     Active Substance: OXAZEPAM
     Indication: Psychotic disorder
     Route: 065
  45. OXAZEPAM [Suspect]
     Active Substance: OXAZEPAM
     Indication: Schizoaffective disorder bipolar type
     Route: 065
  46. PROCYCLIDINE [Suspect]
     Active Substance: PROCYCLIDINE
     Indication: Obsessive-compulsive disorder
     Route: 065
  47. PROCYCLIDINE [Suspect]
     Active Substance: PROCYCLIDINE
     Indication: Psychotic disorder
     Route: 065
  48. PROCYCLIDINE [Suspect]
     Active Substance: PROCYCLIDINE
     Indication: Schizoaffective disorder bipolar type
     Route: 065
  49. PROCYCLIDINE [Suspect]
     Active Substance: PROCYCLIDINE
     Indication: Obsessive-compulsive disorder
     Route: 065
  50. PROCYCLIDINE [Suspect]
     Active Substance: PROCYCLIDINE
     Indication: Psychotic disorder
     Route: 065
  51. PROCYCLIDINE [Suspect]
     Active Substance: PROCYCLIDINE
     Indication: Schizoaffective disorder bipolar type
     Route: 065
  52. DIVALPROEX SODIUM [Suspect]
     Active Substance: DIVALPROEX SODIUM
     Indication: Obsessive-compulsive disorder
     Route: 065
  53. DIVALPROEX SODIUM [Suspect]
     Active Substance: DIVALPROEX SODIUM
     Indication: Psychotic disorder
     Route: 065
  54. DIVALPROEX SODIUM [Suspect]
     Active Substance: DIVALPROEX SODIUM
     Indication: Schizoaffective disorder bipolar type
     Route: 065
  55. DIVALPROEX SODIUM [Suspect]
     Active Substance: DIVALPROEX SODIUM
     Indication: Obsessive-compulsive disorder
     Dosage: AMOUNT: 1500 MILLIGRAM
     Route: 065
  56. DIVALPROEX SODIUM [Suspect]
     Active Substance: DIVALPROEX SODIUM
     Indication: Psychotic disorder
     Dosage: AMOUNT: 1500 MILLIGRAM
     Route: 065
  57. DIVALPROEX SODIUM [Suspect]
     Active Substance: DIVALPROEX SODIUM
     Indication: Schizoaffective disorder bipolar type
     Dosage: AMOUNT: 1500 MILLIGRAM
     Route: 065
  58. DIVALPROEX SODIUM [Suspect]
     Active Substance: DIVALPROEX SODIUM
     Indication: Obsessive-compulsive disorder
     Route: 065
  59. DIVALPROEX SODIUM [Suspect]
     Active Substance: DIVALPROEX SODIUM
     Indication: Psychotic disorder
     Route: 065
  60. DIVALPROEX SODIUM [Suspect]
     Active Substance: DIVALPROEX SODIUM
     Indication: Schizoaffective disorder bipolar type
     Route: 065
  61. DIVALPROEX SODIUM [Suspect]
     Active Substance: DIVALPROEX SODIUM
     Indication: Obsessive-compulsive disorder
     Dosage: AMOUNT: 1500 MILLIGRAM
     Route: 065
  62. DIVALPROEX SODIUM [Suspect]
     Active Substance: DIVALPROEX SODIUM
     Indication: Psychotic disorder
     Dosage: AMOUNT: 1500 MILLIGRAM
     Route: 065
  63. DIVALPROEX SODIUM [Suspect]
     Active Substance: DIVALPROEX SODIUM
     Indication: Schizoaffective disorder bipolar type
     Dosage: AMOUNT: 1500 MILLIGRAM
     Route: 065
  64. ZOPICLONE [Suspect]
     Active Substance: ZOPICLONE
     Indication: Obsessive-compulsive disorder
     Dosage: AMOUNT: 15 MILLIGRAM?TABLETS DOSAGE FORM
     Route: 065
  65. ZOPICLONE [Suspect]
     Active Substance: ZOPICLONE
     Indication: Psychotic disorder
     Dosage: AMOUNT: 15 MILLIGRAM?TABLETS DOSAGE FORM
     Route: 065
  66. ZOPICLONE [Suspect]
     Active Substance: ZOPICLONE
     Indication: Schizoaffective disorder bipolar type
     Dosage: AMOUNT: 15 MILLIGRAM?TABLETS DOSAGE FORM
     Route: 065
  67. ZOPICLONE [Suspect]
     Active Substance: ZOPICLONE
     Indication: Obsessive-compulsive disorder
     Route: 065
  68. ZOPICLONE [Suspect]
     Active Substance: ZOPICLONE
     Indication: Psychotic disorder
     Route: 065
  69. ZOPICLONE [Suspect]
     Active Substance: ZOPICLONE
     Indication: Schizoaffective disorder bipolar type
     Route: 065
  70. ZOPICLONE [Suspect]
     Active Substance: ZOPICLONE
     Indication: Obsessive-compulsive disorder
     Route: 065
  71. ZOPICLONE [Suspect]
     Active Substance: ZOPICLONE
     Indication: Psychotic disorder
     Route: 065
  72. ZOPICLONE [Suspect]
     Active Substance: ZOPICLONE
     Indication: Schizoaffective disorder bipolar type
     Route: 065
  73. ZUCLOPENTHIXOL DECANOATE [Suspect]
     Active Substance: ZUCLOPENTHIXOL DECANOATE
     Indication: Obsessive-compulsive disorder
     Dosage: 1 EVERY 1 WEEKS?AMOUNT: 450 MILLIGRAM
     Route: 065
  74. ZUCLOPENTHIXOL DECANOATE [Suspect]
     Active Substance: ZUCLOPENTHIXOL DECANOATE
     Indication: Psychotic disorder
     Dosage: 1 EVERY 1 WEEKS?AMOUNT: 450 MILLIGRAM
     Route: 065
  75. ZUCLOPENTHIXOL DECANOATE [Suspect]
     Active Substance: ZUCLOPENTHIXOL DECANOATE
     Indication: Schizoaffective disorder bipolar type
     Dosage: 1 EVERY 1 WEEKS?AMOUNT: 450 MILLIGRAM
     Route: 065
  76. ZUCLOPENTHIXOL DECANOATE [Suspect]
     Active Substance: ZUCLOPENTHIXOL DECANOATE
     Indication: Obsessive-compulsive disorder
     Route: 065
  77. ZUCLOPENTHIXOL DECANOATE [Suspect]
     Active Substance: ZUCLOPENTHIXOL DECANOATE
     Indication: Psychotic disorder
     Route: 065
  78. ZUCLOPENTHIXOL DECANOATE [Suspect]
     Active Substance: ZUCLOPENTHIXOL DECANOATE
     Indication: Schizoaffective disorder bipolar type
     Route: 065
  79. ZUCLOPENTHIXOL DECANOATE [Suspect]
     Active Substance: ZUCLOPENTHIXOL DECANOATE
     Indication: Obsessive-compulsive disorder
     Route: 065
  80. ZUCLOPENTHIXOL DECANOATE [Suspect]
     Active Substance: ZUCLOPENTHIXOL DECANOATE
     Indication: Psychotic disorder
     Route: 065
  81. ZUCLOPENTHIXOL DECANOATE [Suspect]
     Active Substance: ZUCLOPENTHIXOL DECANOATE
     Indication: Schizoaffective disorder bipolar type
     Route: 065
  82. CARBAMAZEPINE [Concomitant]
     Active Substance: CARBAMAZEPINE
     Indication: Product used for unknown indication
     Dosage: NOT SPECIFIED DOSAGE FORM
     Route: 065
  83. CLONAZEPAM [Concomitant]
     Active Substance: CLONAZEPAM
     Indication: Product used for unknown indication
     Dosage: TABLETS DOSAGE FORM
     Route: 065
  84. LOXAPINE [Concomitant]
     Active Substance: LOXAPINE
     Indication: Product used for unknown indication
     Dosage: NOT SPECIFIED DOSAGE FORM
     Route: 065
  85. QUETIAPINE [Concomitant]
     Active Substance: QUETIAPINE
     Indication: Product used for unknown indication
     Dosage: 1 EVERY 1 DAYS?AMOUNT: 800 MILLIGRAM?TABLETS DOSAGE FORM
     Route: 065

REACTIONS (11)
  - Aggression [Recovering/Resolving]
  - Antipsychotic drug level increased [Recovering/Resolving]
  - Condition aggravated [Unknown]
  - Delirium [Recovering/Resolving]
  - Disorientation [Recovering/Resolving]
  - Drug interaction [Recovering/Resolving]
  - Irritability [Recovering/Resolving]
  - Obesity [Recovering/Resolving]
  - Orthostatic hypotension [Recovering/Resolving]
  - Sedation [Recovering/Resolving]
  - Tardive dyskinesia [Recovering/Resolving]
